FAERS Safety Report 21324824 (Version 1)
Quarter: 2022Q3

REPORT INFORMATION
  Report Type: Spontaneous
  Country: US (occurrence: US)
  Receive Date: 20220912
  Receipt Date: 20220912
  Transmission Date: 20221027
  Serious: No
  Sender: FDA-Public Use
  Company Number: US-ALKERMES INC.-ALK-2022-004362

PATIENT
  Sex: Female

DRUGS (2)
  1. VIVITROL [Suspect]
     Active Substance: NALTREXONE
     Indication: Alcoholism
     Dosage: 380 MILLIGRAM, QMO
     Route: 030
     Dates: start: 202208
  2. VIVITROL [Suspect]
     Active Substance: NALTREXONE
     Dosage: 380 MILLIGRAM, QMO
     Route: 030

REACTIONS (6)
  - Gait disturbance [Unknown]
  - Product administered at inappropriate site [Unknown]
  - Lack of administration site rotation [Unknown]
  - Pain [Recovered/Resolved]
  - Injection site reaction [Unknown]
  - Injection site injury [Unknown]

NARRATIVE: CASE EVENT DATE: 20220101
